FAERS Safety Report 7054987-1 (Version None)
Quarter: 2010Q4

REPORT INFORMATION
  Report Type: 
  Country: None (occurrence: None)
  Receive Date: 20101021
  Receipt Date: 20101012
  Transmission Date: 20110411
  Serious: Yes (Other)
  Sender: FDA-Public Use
  Company Number: JP-JNJFOC-20101004676

PATIENT
  Sex: Female

DRUGS (8)
  1. TOPIRAMATE [Suspect]
     Indication: EPILEPSY
     Route: 048
  2. TOPIRAMATE [Suspect]
     Route: 048
  3. TOPIRAMATE [Suspect]
     Route: 048
  4. TOPIRAMATE [Suspect]
     Route: 048
  5. SELENICA-R [Concomitant]
     Indication: EPILEPSY
     Route: 048
  6. GABAPEN [Concomitant]
     Indication: EPILEPSY
     Route: 048
  7. GABAPEN [Concomitant]
     Route: 048
  8. NOXTAL (BROTIZOLAM) [Concomitant]
     Route: 048

REACTIONS (7)
  - ABORTION INDUCED [None]
  - DECREASED APPETITE [None]
  - DIARRHOEA [None]
  - DRUG EXPOSURE DURING PREGNANCY [None]
  - POLYDIPSIA [None]
  - PREGNANCY [None]
  - VOMITING IN PREGNANCY [None]
